FAERS Safety Report 7915662-1 (Version None)
Quarter: 2011Q4

REPORT INFORMATION
  Report Type: 
  Country: None (occurrence: None)
  Receive Date: 20111115
  Receipt Date: 20111114
  Transmission Date: 20120403
  Serious: Yes (Hospitalization)
  Sender: FDA-Public Use
  Company Number: US-GLAXOSMITHKLINE-A0938899A

PATIENT
  Age: 57 Year
  Sex: Male

DRUGS (2)
  1. AVANDIA [Suspect]
     Indication: DIABETES MELLITUS
     Dosage: 4MG TWICE PER DAY
     Route: 048
     Dates: start: 20080915, end: 20090113
  2. AVANDAMET [Suspect]
     Indication: DIABETES MELLITUS
     Route: 048
     Dates: start: 20050810, end: 20060514

REACTIONS (5)
  - CARDIOMYOPATHY [None]
  - HEART INJURY [None]
  - CARDIAC DISORDER [None]
  - SILENT MYOCARDIAL INFARCTION [None]
  - CARDIAC FAILURE CONGESTIVE [None]
